FAERS Safety Report 6121635-4 (Version None)
Quarter: 2009Q1

REPORT INFORMATION
  Report Type: 
  Country: None (occurrence: None)
  Receive Date: 20090313
  Receipt Date: 20090303
  Transmission Date: 20090719
  Serious: Yes (Hospitalization)
  Sender: FDA-Public Use
  Company Number: US025178

PATIENT
  Age: 55 Year
  Sex: Female
  Weight: 105.6881 kg

DRUGS (18)
  1. PROVIGIL [Suspect]
     Indication: SOMNOLENCE
     Dosage: 100 MG BID ORAL
     Route: 048
     Dates: start: 20081104
  2. ADVAIR HFA [Concomitant]
  3. SYNTHORID [Concomitant]
  4. LIPITOR [Concomitant]
  5. LYRICA [Concomitant]
  6. DIOVAN /01319601/ [Concomitant]
  7. SINGULAIR [Concomitant]
  8. TRAMADOL HCL [Concomitant]
  9. GARLIC [Concomitant]
  10. STRESSTABS WITH ZINC [Concomitant]
  11. ASCORBIC ACID [Concomitant]
  12. VITAMIN E [Concomitant]
  13. ZYRTEC [Concomitant]
  14. DICYLOMINE [Concomitant]
  15. ALBUTEROL [Concomitant]
  16. VANCERIL [Concomitant]
  17. MOBIC [Concomitant]
  18. IBUPROFEN [Concomitant]

REACTIONS (5)
  - BACTERIAL INFECTION [None]
  - ERYTHEMA MULTIFORME [None]
  - FUNGAL INFECTION [None]
  - SKIN INFECTION [None]
  - STEVENS-JOHNSON SYNDROME [None]
